FAERS Safety Report 12672188 (Version 1)
Quarter: 2016Q3

REPORT INFORMATION
  Report Type: Other
  Country: IT (occurrence: IT)
  Receive Date: 20160822
  Receipt Date: 20160822
  Transmission Date: 20161109
  Serious: Yes (Other)
  Sender: FDA-Public Use
  Company Number: IT-APOTEX-2016AP010453

PATIENT
  Age: 45 Year
  Sex: Male

DRUGS (3)
  1. QUETIAPINA DOC GENERICI COMPRESSE RIVESTITE CON FILM [Suspect]
     Active Substance: QUETIAPINE
     Indication: SCHIZOPHRENIA
     Dosage: 800 MG, DAILY
     Route: 048
     Dates: start: 20120103, end: 20160731
  2. ENTUMIN [Suspect]
     Active Substance: CLOTHIAPINE
     Indication: SCHIZOPHRENIA
     Dosage: 40 MG, DAILY
     Route: 048
     Dates: start: 20160519, end: 20160731
  3. RISPERDAL [Suspect]
     Active Substance: RISPERIDONE
     Indication: SCHIZOPHRENIA
     Dosage: 6 ML, DAILY
     Route: 048
     Dates: start: 20131202, end: 20160731

REACTIONS (3)
  - Electrocardiogram QT prolonged [Recovered/Resolved]
  - Atrial tachycardia [Unknown]
  - Bundle branch block left [Unknown]

NARRATIVE: CASE EVENT DATE: 20160731
